FAERS Safety Report 12001636 (Version 5)
Quarter: 2016Q2

REPORT INFORMATION
  Report Type: Report from Study
  Country: CA (occurrence: CA)
  Receive Date: 20160204
  Receipt Date: 20160506
  Transmission Date: 20160815
  Serious: Yes (Hospitalization, Other)
  Sender: FDA-Public Use
  Company Number: CA-ABBVIE-16K-028-1537798-00

PATIENT
  Age: 53 Year
  Sex: Male

DRUGS (1)
  1. HUMIRA [Suspect]
     Active Substance: ADALIMUMAB
     Indication: CROHN^S DISEASE
     Route: 058
     Dates: start: 20110502, end: 201511

REACTIONS (3)
  - Abdominal adhesions [Unknown]
  - Intestinal obstruction [Not Recovered/Not Resolved]
  - Drug ineffective [Recovered/Resolved]

NARRATIVE: CASE EVENT DATE: 201601
